FAERS Safety Report 6743362-2 (Version None)
Quarter: 2010Q2

REPORT INFORMATION
  Report Type: 
  Country: None (occurrence: None)
  Receive Date: 20100527
  Receipt Date: 20100521
  Transmission Date: 20101027
  Serious: Yes (Other)
  Sender: FDA-Public Use
  Company Number: US-BRISTOL-MYERS SQUIBB COMPANY-15102437

PATIENT
  Age: 48 Year
  Sex: Male

DRUGS (3)
  1. ERBITUX [Suspect]
     Indication: HEAD AND NECK CANCER
     Dosage: 10AUG09(400MG/M2)18,24,31AUG9;6,14,21,28SEP9;6,20NOV9;4,18,30DEC9;15,29JAN10;12,26FEB,INTE'D ON 2MAR
     Route: 042
     Dates: start: 20090810
  2. CHEMOTHERAPY [Suspect]
  3. RADIOTHERAPY [Suspect]

REACTIONS (1)
  - ANAL FISSURE [None]
